FAERS Safety Report 22016570 (Version 1)
Quarter: 2023Q1

REPORT INFORMATION
  Report Type: Spontaneous
  Country: US (occurrence: US)
  Receive Date: 20230221
  Receipt Date: 20230221
  Transmission Date: 20230417
  Serious: Yes (Hospitalization)
  Sender: FDA-Public Use
  Company Number: US-ABBVIE-4312175

PATIENT

DRUGS (3)
  1. DUOPA [Suspect]
     Active Substance: CARBIDOPA\LEVODOPA
     Indication: Product used for unknown indication
     Route: 050
  2. DUOPA [Suspect]
     Active Substance: CARBIDOPA\LEVODOPA
  3. HUMIRA [Suspect]
     Active Substance: ADALIMUMAB
     Indication: Product used for unknown indication
     Route: 058

REACTIONS (1)
  - Hospitalisation [Not Recovered/Not Resolved]
